FAERS Safety Report 4427564-6 (Version None)
Quarter: 2004Q3

REPORT INFORMATION
  Report Type: 
  Country: None (occurrence: None)
  Receive Date: 20040812
  Receipt Date: 20040730
  Transmission Date: 20050211
  Serious: Yes (Hospitalization)
  Sender: FDA-Public Use
  Company Number: FABR-10539

PATIENT
  Age: 47 Year
  Sex: Female
  Weight: 70 kg

DRUGS (5)
  1. FABRAZYME [Suspect]
     Indication: FABRY'S DISEASE
     Dosage: 1.1 MG/KG Q2WKS IV
     Route: 042
     Dates: start: 20031218, end: 20040409
  2. WELLBUTRIN [Concomitant]
  3. NORVASC [Concomitant]
  4. CATAPRES [Concomitant]
  5. ATENOLOL [Concomitant]

REACTIONS (6)
  - ABDOMINAL PAIN [None]
  - CONDITION AGGRAVATED [None]
  - CONVULSION [None]
  - HYPERTENSIVE CRISIS [None]
  - RENAL FAILURE CHRONIC [None]
  - TREATMENT NONCOMPLIANCE [None]
